FAERS Safety Report 10262970 (Version 2)
Quarter: 2014Q2

REPORT INFORMATION
  Report Type: Spontaneous
  Country: US (occurrence: US)
  Receive Date: 20140626
  Receipt Date: 20140626
  Transmission Date: 20141212
  Serious: No
  Sender: FDA-Public Use
  Company Number: US-MYLANLABS-2013S1024483

PATIENT
  Age: 57 Year
  Sex: Male

DRUGS (5)
  1. CLOZAPINE TABLETS [Suspect]
     Indication: SCHIZOPHRENIA
     Dosage: ALSO TAKES 500MG AT HS
     Route: 048
     Dates: start: 1992
  2. CLOZAPINE TABLETS [Suspect]
     Indication: SCHIZOPHRENIA
     Dosage: ALSO TAKES 500MG AT HS
     Route: 048
     Dates: start: 1992
  3. LOXAPINE [Concomitant]
     Route: 048
  4. COGENTIN [Concomitant]
     Route: 048
  5. LORAZEPAM [Concomitant]
     Route: 048

REACTIONS (1)
  - Neutrophil count increased [Recovered/Resolved]
